FAERS Safety Report 7772064-9 (Version None)
Quarter: 2011Q3

REPORT INFORMATION
  Report Type: 
  Country: None (occurrence: None)
  Receive Date: 20110922
  Receipt Date: 20100527
  Transmission Date: 20111222
  Serious: Yes (Other)
  Sender: FDA-Public Use
  Company Number: US-ASTRAZENECA-2007UW18809

PATIENT
  Age: 591 Month
  Sex: Female
  Weight: 85.3 kg

DRUGS (32)
  1. DEPAKOTE [Concomitant]
     Dosage: 250-500 MG
     Route: 065
     Dates: start: 19980115
  2. WELLBUTRIN SR [Concomitant]
     Route: 065
     Dates: start: 19980115, end: 19980901
  3. SEROQUEL [Suspect]
     Indication: DEPRESSION
     Dosage: 100 MG TO 400 MG
     Route: 048
     Dates: start: 19990101, end: 20070101
  4. SEROQUEL [Suspect]
     Indication: AFFECTIVE DISORDER
     Dosage: 100 MG TO 400 MG
     Route: 048
     Dates: start: 19990101, end: 20070101
  5. SEROQUEL [Suspect]
     Route: 048
     Dates: start: 19990222
  6. SEROQUEL [Suspect]
     Dosage: 100-400 MG
     Route: 048
     Dates: start: 19990701, end: 20020513
  7. SEROQUEL [Suspect]
     Route: 048
     Dates: start: 20050314, end: 20050831
  8. SEROQUEL [Suspect]
     Route: 048
     Dates: start: 19990222
  9. SEROQUEL [Suspect]
     Dosage: 100-400 MG
     Route: 048
     Dates: start: 19990701, end: 20020513
  10. RISPERDAL [Concomitant]
     Indication: DEPRESSION
     Dosage: 2.5 MG
     Dates: start: 19970101, end: 19980101
  11. GEODON [Concomitant]
     Dosage: 60 MG
     Dates: start: 20060101
  12. DIOVAN [Concomitant]
     Dosage: 80 MG
     Dates: start: 20050523
  13. SEROQUEL [Suspect]
     Dosage: 100-400 MG
     Route: 048
     Dates: start: 19990701, end: 20020513
  14. PAXIL [Concomitant]
     Dosage: 50 MG- 100 MG
     Route: 065
     Dates: start: 19980115
  15. ZYPREXA [Concomitant]
     Indication: POST-TRAUMATIC STRESS DISORDER
     Dates: start: 19970101, end: 19990101
  16. SEROQUEL [Suspect]
     Route: 048
     Dates: start: 19990222
  17. SEROQUEL [Suspect]
     Route: 048
     Dates: start: 19990222
  18. SEROQUEL [Suspect]
     Route: 048
     Dates: start: 20050314, end: 20050831
  19. SEROQUEL [Suspect]
     Route: 048
     Dates: start: 20050314, end: 20050831
  20. RISPERDAL [Concomitant]
     Indication: POST-TRAUMATIC STRESS DISORDER
     Dosage: 2.5 MG
     Dates: start: 19970101, end: 19980101
  21. ZYPREXA [Concomitant]
     Indication: DEPRESSION
     Dates: start: 19970101, end: 19990101
  22. SINGULAIR [Concomitant]
     Dosage: 10 MG
     Dates: start: 20050523
  23. SEROQUEL [Suspect]
     Indication: INSOMNIA
     Dosage: 100 MG TO 400 MG
     Route: 048
     Dates: start: 19990101, end: 20070101
  24. SEROQUEL [Suspect]
     Dosage: 100-400 MG
     Route: 048
     Dates: start: 19990701, end: 20020513
  25. SEROQUEL [Suspect]
     Route: 048
     Dates: start: 20050314, end: 20050831
  26. RISPERDAL [Concomitant]
     Dosage: 3-6 MG
     Route: 065
     Dates: start: 19980115
  27. RISPERDAL [Concomitant]
     Dosage: 3-6 MG
     Route: 065
     Dates: start: 19980115
  28. TRAZODONE HYDROCHLORIDE [Concomitant]
     Dates: start: 20050314
  29. SEROQUEL [Suspect]
     Indication: POST-TRAUMATIC STRESS DISORDER
     Dosage: 100 MG TO 400 MG
     Route: 048
     Dates: start: 19990101, end: 20070101
  30. EFFEXOR [Concomitant]
     Route: 065
     Dates: start: 19980115
  31. LEXAPRO [Concomitant]
     Dates: start: 20050523
  32. CITALOPRAM HYDROBROMIDE [Concomitant]
     Dosage: 40 MG1 AND1/2 QAM
     Dates: start: 20050831

REACTIONS (7)
  - GESTATIONAL DIABETES [None]
  - DIABETIC COMPLICATION [None]
  - PANCREATITIS [None]
  - TYPE 2 DIABETES MELLITUS [None]
  - ADVERSE DRUG REACTION [None]
  - BLOOD TRIGLYCERIDES INCREASED [None]
  - TREMOR [None]
